FAERS Safety Report 18667939 (Version 4)
Quarter: 2021Q2

REPORT INFORMATION
  Report Type: Other
  Country: US (occurrence: US)
  Receive Date: 20201228
  Receipt Date: 20210406
  Transmission Date: 20210717
  Serious: Yes (Hospitalization)
  Sender: FDA-Public Use
  Company Number: US-ROCHE-2718374

PATIENT
  Age: 68 Year
  Sex: Male

DRUGS (11)
  1. TOCILIZUMAB. [Suspect]
     Active Substance: TOCILIZUMAB
     Indication: COVID-19
  2. AZITHROMYCIN ANHYDROUS. [Concomitant]
     Active Substance: AZITHROMYCIN ANHYDROUS
  3. HYDROXYCHLOROQUINE [Suspect]
     Active Substance: HYDROXYCHLOROQUINE
     Indication: COVID-19 PNEUMONIA
     Route: 065
  4. CEFEPIME [Concomitant]
     Active Substance: CEFEPIME HYDROCHLORIDE
  5. OXYGEN. [Concomitant]
     Active Substance: OXYGEN
  6. TOCILIZUMAB. [Suspect]
     Active Substance: TOCILIZUMAB
     Indication: COVID-19 PNEUMONIA
     Route: 065
  7. VEKLURY [Suspect]
     Active Substance: REMDESIVIR
     Indication: COVID-19 PNEUMONIA
     Route: 042
  8. INTERLEUKIN?6 [Suspect]
     Active Substance: INTERLEUKIN NOS
     Indication: COVID-19 PNEUMONIA
     Route: 065
  9. HYDROXYCHLOROQUINE [Suspect]
     Active Substance: HYDROXYCHLOROQUINE
     Indication: COVID-19
  10. VEKLURY [Suspect]
     Active Substance: REMDESIVIR
     Indication: COVID-19
  11. VANCOMYCIN [Concomitant]
     Active Substance: VANCOMYCIN

REACTIONS (9)
  - Cytomegalovirus viraemia [Unknown]
  - Large intestinal ulcer [Unknown]
  - Cytomegalovirus enterocolitis [Unknown]
  - Off label use [Unknown]
  - Gastrointestinal wall thickening [Unknown]
  - Hypovolaemic shock [Unknown]
  - Diarrhoea [Unknown]
  - Intentional product use issue [Unknown]
  - Cytomegalovirus test positive [Unknown]
